FAERS Safety Report 11111619 (Version 1)
Quarter: 2015Q2

REPORT INFORMATION
  Report Type: Report from Study
  Country: JP (occurrence: JP)
  Receive Date: 20150514
  Receipt Date: 20150514
  Transmission Date: 20150821
  Serious: Yes (Other)
  Sender: FDA-Public Use
  Company Number: JP-ROCHE-1554249

PATIENT
  Age: 49 Year
  Sex: Female

DRUGS (13)
  1. METHOXY POLYETHYLENE GLYCOL-EPOETIN BETA [Suspect]
     Active Substance: METHOXY POLYETHYLENE GLYCOL-EPOETIN BETA
     Indication: NEPHROGENIC ANAEMIA
     Dosage: MOST RECENT DOSE : 26/DEC/2014
     Route: 058
     Dates: start: 20130125
  2. IMURAN [Suspect]
     Active Substance: AZATHIOPRINE
     Indication: SCLERODERMA RENAL CRISIS
     Route: 048
     Dates: start: 20130412, end: 20130517
  3. TANATRIL [Concomitant]
     Active Substance: IMIDAPRIL
     Indication: SCLERODERMA RENAL CRISIS
     Route: 048
  4. TAKEPRON [Concomitant]
     Active Substance: LANSOPRAZOLE
     Indication: SCLERODERMA RENAL CRISIS
     Route: 048
  5. PREDONINE [Concomitant]
     Active Substance: PREDNISOLONE\PREDNISOLONE ACETATE\PREDNISOLONE SODIUM SUCCINATE
     Indication: SCLERODERMA RENAL CRISIS
     Route: 048
  6. ADALAT CC [Concomitant]
     Active Substance: NIFEDIPINE
     Route: 048
  7. BONALON [Concomitant]
     Active Substance: ALENDRONATE SODIUM
     Route: 048
  8. FERROMIA [Concomitant]
     Active Substance: FERROUS CITRATE
     Route: 048
  9. CARDENALIN [Concomitant]
     Active Substance: DOXAZOSIN MESYLATE
     Route: 048
  10. TRAMCET [Concomitant]
     Active Substance: ACETAMINOPHEN\TRAMADOL
     Route: 048
     Dates: end: 20130607
  11. KALIMATE [Concomitant]
     Active Substance: CALCIUM POLYSTYRENE SULFONATE
     Route: 048
     Dates: start: 20130308, end: 20130607
  12. LASIX [Concomitant]
     Active Substance: FUROSEMIDE
     Indication: SCLERODERMA RENAL CRISIS
     Route: 048
  13. ALFAROL [Concomitant]
     Active Substance: ALFACALCIDOL
     Route: 048
     Dates: start: 20131018

REACTIONS (2)
  - Platelet count decreased [Recovering/Resolving]
  - Papillary thyroid cancer [Unknown]

NARRATIVE: CASE EVENT DATE: 20130517
